FAERS Safety Report 7674156-1 (Version None)
Quarter: 2011Q3

REPORT INFORMATION
  Report Type: 
  Country: None (occurrence: None)
  Receive Date: 20110810
  Receipt Date: 20110803
  Transmission Date: 20111222
  Serious: Yes (Death, Life-Threatening, Other)
  Sender: FDA-Public Use
  Company Number: DE-JNJFOC-20091101902

PATIENT
  Age: 82 Year
  Sex: Male

DRUGS (12)
  1. MIRTAZAPINE [Suspect]
     Indication: PRODUCT USED FOR UNKNOWN INDICATION
     Route: 048
     Dates: start: 20071203, end: 20080102
  2. ZOLPIDEM [Suspect]
     Indication: PRODUCT USED FOR UNKNOWN INDICATION
     Route: 048
     Dates: start: 20071130, end: 20080102
  3. LITHIUM CARBONATE [Concomitant]
     Route: 048
     Dates: start: 20071212, end: 20071229
  4. CLOZAPINE [Suspect]
     Route: 048
     Dates: end: 20071127
  5. UBRETID [Concomitant]
     Indication: ILL-DEFINED DISORDER
     Route: 048
     Dates: start: 20071219, end: 20080102
  6. HALDOL [Suspect]
     Route: 048
     Dates: start: 20071130, end: 20071203
  7. LORAZEPAM [Suspect]
     Indication: PRODUCT USED FOR UNKNOWN INDICATION
     Route: 048
     Dates: start: 20071220, end: 20071231
  8. LITHIUM CARBONATE [Concomitant]
     Indication: ILL-DEFINED DISORDER
     Route: 048
     Dates: start: 20071230, end: 20080102
  9. SAB SIMPLEX [Concomitant]
     Route: 065
     Dates: start: 20071220, end: 20080102
  10. HALDOL [Suspect]
     Indication: PRODUCT USED FOR UNKNOWN INDICATION
     Route: 048
     Dates: start: 20071204, end: 20071227
  11. CLOZAPINE [Suspect]
     Indication: ILL-DEFINED DISORDER
     Route: 048
     Dates: start: 20071128, end: 20080102
  12. HALDOL [Suspect]
     Route: 048
     Dates: start: 20071228, end: 20080102

REACTIONS (3)
  - CARDIOPULMONARY FAILURE [None]
  - FATIGUE [None]
  - PNEUMONIA [None]
